FAERS Safety Report 20187196 (Version 4)
Quarter: 2022Q2

REPORT INFORMATION
  Report Type: Report from Study
  Country: CA (occurrence: CA)
  Receive Date: 20211215
  Receipt Date: 20220629
  Transmission Date: 20220720
  Serious: Yes (Hospitalization, Other)
  Sender: FDA-Public Use
  Company Number: CA-ABBVIE-21K-028-4197384-00

PATIENT
  Sex: Male

DRUGS (3)
  1. CARBIDOPA\LEVODOPA [Suspect]
     Active Substance: CARBIDOPA\LEVODOPA
     Indication: Parkinson^s disease
     Dosage: LEVODOPA20MG/ML,CARBIDOPAMONOHYDRATE5MG/ML
     Route: 050
     Dates: start: 20160203
  2. CARBIDOPA\LEVODOPA [Suspect]
     Active Substance: CARBIDOPA\LEVODOPA
  3. QUETIAPINE [Concomitant]
     Active Substance: QUETIAPINE
     Indication: Product used for unknown indication

REACTIONS (25)
  - Choking [Recovered/Resolved]
  - Rib fracture [Unknown]
  - Device dislocation [Unknown]
  - Food intolerance [Unknown]
  - Diplopia [Unknown]
  - Reading disorder [Unknown]
  - Dizziness postural [Not Recovered/Not Resolved]
  - Balance disorder [Not Recovered/Not Resolved]
  - Gastrointestinal disorder [Unknown]
  - Middle insomnia [Unknown]
  - Memory impairment [Not Recovered/Not Resolved]
  - Depression [Unknown]
  - Anxiety [Unknown]
  - Apathy [Unknown]
  - Fatigue [Not Recovered/Not Resolved]
  - Dystonia [Unknown]
  - Musculoskeletal disorder [Unknown]
  - Apraxia [Unknown]
  - Corticobasal degeneration [Not Recovered/Not Resolved]
  - Fall [Unknown]
  - Musculoskeletal disorder [Unknown]
  - General symptom [Unknown]
  - Gait inability [Unknown]
  - Dysphagia [Unknown]
  - Stoma site hypergranulation [Not Recovered/Not Resolved]

NARRATIVE: CASE EVENT DATE: 20210101
